FAERS Safety Report 17097784 (Version 1)
Quarter: 2019Q4

REPORT INFORMATION
  Report Type: Spontaneous
  Country: JP (occurrence: JP)
  Receive Date: 20191202
  Receipt Date: 20191202
  Transmission Date: 20200122
  Serious: Yes (Hospitalization)
  Sender: FDA-Public Use
  Company Number: JP-TEVA-2019-JP-1146886

PATIENT
  Age: 88 Year
  Sex: Male

DRUGS (4)
  1. DOPACOL [Concomitant]
     Active Substance: CARBIDOPA\LEVODOPA
  2. ENTACAPONE. [Concomitant]
     Active Substance: ENTACAPONE
  3. AZILECT [Suspect]
     Active Substance: RASAGILINE MESYLATE
     Indication: PARKINSON^S DISEASE
     Dosage: 1 MILLIGRAM DAILY;
     Route: 048
     Dates: start: 20190906, end: 201910
  4. NEUPRO [Concomitant]
     Active Substance: ROTIGOTINE
     Route: 065

REACTIONS (1)
  - Gait disturbance [Recovered/Resolved]

NARRATIVE: CASE EVENT DATE: 201910
